FAERS Safety Report 8466473-2 (Version None)
Quarter: 2012Q2

REPORT INFORMATION
  Report Type: 
  Country: None (occurrence: None)
  Receive Date: 20120626
  Receipt Date: 20120621
  Transmission Date: 20120825
  Serious: Yes (Other)
  Sender: FDA-Public Use
  Company Number: PHHY2012US053788

PATIENT
  Age: 68 Year
  Sex: Female

DRUGS (2)
  1. LISINOPRIL [Suspect]
     Dosage: 5 MG, UNK
  2. OMEPRAZOLE [Concomitant]
     Indication: GASTROOESOPHAGEAL REFLUX DISEASE

REACTIONS (6)
  - LICHEN PLANUS [None]
  - PAPULE [None]
  - GINGIVAL PAIN [None]
  - RASH PRURITIC [None]
  - ORAL PAIN [None]
  - RASH ERYTHEMATOUS [None]
